FAERS Safety Report 9997530 (Version 2)
Quarter: 2014Q2

REPORT INFORMATION
  Report Type: Spontaneous
  Country: SE (occurrence: SE)
  Receive Date: 20140311
  Receipt Date: 20140407
  Transmission Date: 20141212
  Serious: Yes (Hospitalization)
  Sender: FDA-Public Use
  Company Number: SE-NAPPMUNDI-GBR-2014-0017273

PATIENT
  Sex: Female

DRUGS (1)
  1. MORPHINE SULFATE [Suspect]
     Indication: NEURITIS
     Route: 065

REACTIONS (4)
  - Polyneuropathy chronic [Unknown]
  - Paralysis [Unknown]
  - Nausea [Unknown]
  - Drug ineffective [Unknown]
